FAERS Safety Report 20393627 (Version 1)
Quarter: 2022Q1

REPORT INFORMATION
  Report Type: Spontaneous
  Country: CN (occurrence: CN)
  Receive Date: 20220128
  Receipt Date: 20220128
  Transmission Date: 20220424
  Serious: Yes (Hospitalization)
  Sender: FDA-Public Use
  Company Number: CN-DSJP-DSJ-2022-102291

PATIENT
  Age: 85 Year
  Sex: Female
  Weight: 60 kg

DRUGS (4)
  1. EDOXABAN [Suspect]
     Active Substance: EDOXABAN
     Indication: Pulmonary embolism
     Dosage: 30 MG, DAILY
     Route: 048
     Dates: start: 20220113, end: 20220117
  2. EDOXABAN [Suspect]
     Active Substance: EDOXABAN
     Dosage: 15 MG, QD
     Route: 048
     Dates: start: 20220115
  3. ENOXAPARIN SODIUM [Concomitant]
     Active Substance: ENOXAPARIN SODIUM
     Indication: Pulmonary embolism
     Dosage: 0.8 ML, DAILY
     Route: 058
     Dates: start: 20220106, end: 20220112
  4. CEFOPERAZONE SODIUM\SULBACTAM SODIUM [Concomitant]
     Active Substance: CEFOPERAZONE SODIUM\SULBACTAM SODIUM
     Indication: Pneumonia
     Dosage: 6 G, DAILY
     Route: 040
     Dates: start: 20220110, end: 20220115

REACTIONS (2)
  - Purpura [Recovering/Resolving]
  - Petechiae [Recovering/Resolving]

NARRATIVE: CASE EVENT DATE: 20220115
